FAERS Safety Report 9381749 (Version 1)
Quarter: 2013Q3

REPORT INFORMATION
  Report Type: Spontaneous
  Country: US (occurrence: US)
  Receive Date: 20130703
  Receipt Date: 20130703
  Transmission Date: 20140515
  Serious: Yes (Disabling)
  Sender: FDA-Public Use
  Company Number: US-PFIZER INC-2013196541

PATIENT
  Age: 48 Year
  Sex: Female
  Weight: 89.8 kg

DRUGS (3)
  1. PRISTIQ [Suspect]
     Indication: MUSCULOSKELETAL PAIN
     Dosage: 100 MG, 1X/DAY
     Dates: start: 2010
  2. LYRICA [Concomitant]
     Indication: FIBROMYALGIA
     Dosage: 150 MG, 2X/DAY
  3. AMBIEN [Concomitant]
     Indication: SLEEP APNOEA SYNDROME
     Dosage: 10 MG, 1X/DAY

REACTIONS (2)
  - Abasia [Not Recovered/Not Resolved]
  - Off label use [Unknown]
